FAERS Safety Report 9320493 (Version 1)
Quarter: 2013Q2

REPORT INFORMATION
  Report Type: Spontaneous
  Country: GB (occurrence: GB)
  Receive Date: 20130530
  Receipt Date: 20130530
  Transmission Date: 20140414
  Serious: Yes (Other)
  Sender: FDA-Public Use
  Company Number: PHHY2013GB053881

PATIENT
  Age: 29 Year
  Sex: Female

DRUGS (2)
  1. RIFAMPICIN [Suspect]
     Indication: ANTIBIOTIC PROPHYLAXIS
  2. HAEM ARGINATE [Concomitant]
     Route: 042

REACTIONS (13)
  - Hyponatraemia [Unknown]
  - Dysphagia [Recovered/Resolved]
  - Ischaemic stroke [Recovering/Resolving]
  - Cerebral artery stenosis [Recovering/Resolving]
  - Cerebral vasoconstriction [Recovering/Resolving]
  - Porphyria [Recovered/Resolved]
  - Hemiparesis [Recovered/Resolved]
  - Convulsion [Recovered/Resolved]
  - Confusional state [Recovered/Resolved]
  - Nausea [Recovered/Resolved]
  - Vomiting [Recovered/Resolved]
  - Abdominal pain [Recovered/Resolved]
  - Gait disturbance [Recovered/Resolved]
